FAERS Safety Report 5089048-4 (Version None)
Quarter: 2006Q3

REPORT INFORMATION
  Report Type: 
  Country: None (occurrence: None)
  Receive Date: 20060825
  Receipt Date: 20060818
  Transmission Date: 20061208
  Serious: Yes (Other)
  Sender: FDA-Public Use
  Company Number: 2006UW16476

PATIENT
  Age: 85 Year
  Sex: Female
  Weight: 79.4 kg

DRUGS (4)
  1. ARIMIDEX [Suspect]
     Indication: BREAST CANCER FEMALE
     Route: 048
     Dates: start: 20030101
  2. BENICAR [Concomitant]
  3. NORVASC [Concomitant]
  4. PULMICORT [Concomitant]
     Route: 055

REACTIONS (1)
  - ASTHMA [None]
